FAERS Safety Report 20011473 (Version 1)
Quarter: 2021Q4

REPORT INFORMATION
  Report Type: Report from Study
  Country: US (occurrence: US)
  Receive Date: 20211029
  Receipt Date: 20211029
  Transmission Date: 20220304
  Serious: Yes (Hospitalization)
  Sender: FDA-Public Use
  Company Number: US-JNJFOC-20211050484

PATIENT
  Age: 3 Decade
  Sex: Male

DRUGS (2)
  1. SPRAVATO [Suspect]
     Active Substance: ESKETAMINE
     Indication: Depression
     Dosage: 1 DOSE
     Dates: start: 20190913, end: 20190913
  2. SPRAVATO [Suspect]
     Active Substance: ESKETAMINE
     Dosage: 53 DOSES
     Dates: start: 20190918, end: 20210806

REACTIONS (1)
  - Hospitalisation [Unknown]
